FAERS Safety Report 7153888-8 (Version None)
Quarter: 2010Q4

REPORT INFORMATION
  Report Type: 
  Country: None (occurrence: None)
  Receive Date: 20101213
  Receipt Date: 20101021
  Transmission Date: 20110411
  Serious: No
  Sender: FDA-Public Use
  Company Number: US-ABBOTT-10P-163-0679761-00

PATIENT
  Sex: Female
  Weight: 81.72 kg

DRUGS (4)
  1. MERIDIA [Suspect]
     Indication: WEIGHT CONTROL
     Dates: start: 20100801, end: 20101001
  2. PREDNISONE [Concomitant]
     Indication: RESPIRATORY DISORDER
  3. SYNTHROID [Concomitant]
     Indication: HYPOTHYROIDISM
  4. UNKNOWN BLOOD PRESSURE MEDICATION [Concomitant]
     Indication: HYPERTENSION

REACTIONS (3)
  - COUGH [None]
  - NASOPHARYNGITIS [None]
  - SLUGGISHNESS [None]
